FAERS Safety Report 7651543-9 (Version None)
Quarter: 2011Q3

REPORT INFORMATION
  Report Type: 
  Country: None (occurrence: None)
  Receive Date: 20110802
  Receipt Date: 20110729
  Transmission Date: 20111222
  Serious: Yes (Death, Other)
  Sender: FDA-Public Use
  Company Number: PHHY2011CA67693

PATIENT
  Sex: Male

DRUGS (3)
  1. CLOZAPINE [Concomitant]
     Dosage: 450 MG, QHS
  2. ARIPIPRAZOLE [Concomitant]
     Dosage: 10 MG, QAM
  3. CLOZAPINE [Suspect]
     Indication: SCHIZOPHRENIA
     Dosage: 450 MG,
     Route: 048
     Dates: start: 20110505, end: 20110723

REACTIONS (3)
  - DYSPNOEA [None]
  - HAEMATEMESIS [None]
  - DEATH [None]
